FAERS Safety Report 10179283 (Version 1)
Quarter: 2014Q2

REPORT INFORMATION
  Report Type: Spontaneous
  Country: US (occurrence: US)
  Receive Date: 20140519
  Receipt Date: 20140519
  Transmission Date: 20141212
  Serious: Yes (Other)
  Sender: FDA-Public Use
  Company Number: CHPA2014US006680

PATIENT
  Age: 54 Year
  Sex: Male

DRUGS (2)
  1. CONTROL STEP 2 14MG [Suspect]
     Indication: SMOKING CESSATION THERAPY
     Dosage: UNK
     Route: 062
  2. CONTROL STEP 2 14MG [Suspect]
     Dosage: 1 DF, QD
     Route: 062

REACTIONS (3)
  - Myocardial infarction [Unknown]
  - Incorrect drug administration duration [Unknown]
  - Drug ineffective [Unknown]
